FAERS Safety Report 5606781-3 (Version None)
Quarter: 2008Q1

REPORT INFORMATION
  Report Type: 
  Country: None (occurrence: None)
  Receive Date: 20080129
  Receipt Date: 20080118
  Transmission Date: 20080703
  Serious: Yes (Death, Hospitalization)
  Sender: FDA-Public Use
  Company Number: ES-PFIZER INC-2005162012

PATIENT
  Sex: Male
  Weight: 50.5 kg

DRUGS (5)
  1. SU-011,248 [Suspect]
     Indication: NON-SMALL CELL LUNG CANCER
     Route: 048
  2. FENTANYL [Concomitant]
  3. OMEPRAZOLE [Concomitant]
  4. MEGESTROL [Concomitant]
  5. IBUPROFEN [Concomitant]

REACTIONS (4)
  - CEREBROVASCULAR ACCIDENT [None]
  - MUCOSAL INFLAMMATION [None]
  - PNEUMONIA [None]
  - RECTAL HAEMORRHAGE [None]
